FAERS Safety Report 7105821-2 (Version None)
Quarter: 2010Q4

REPORT INFORMATION
  Report Type: 
  Country: None (occurrence: None)
  Receive Date: 20101116
  Receipt Date: 20101105
  Transmission Date: 20110411
  Serious: Yes (Other)
  Sender: FDA-Public Use
  Company Number: US-JNJFOC-20101102518

PATIENT
  Sex: Male
  Weight: 82.1 kg

DRUGS (3)
  1. REMICADE [Suspect]
     Indication: CROHN'S DISEASE
     Dosage: 5 MG/KG  FOR 3 YEARS
     Route: 042
  2. VALIUM [Concomitant]
     Dosage: PRN
     Route: 065
  3. CODEINE [Concomitant]
     Dosage: PRN
     Route: 065

REACTIONS (1)
  - DEAFNESS [None]
